FAERS Safety Report 13243989 (Version 3)
Quarter: 2019Q1

REPORT INFORMATION
  Report Type: Report from Study
  Country: FR (occurrence: FR)
  Receive Date: 20170217
  Receipt Date: 20190328
  Transmission Date: 20190417
  Serious: Yes (Death, Other)
  Sender: FDA-Public Use
  Company Number: FR-ADIENNEP-2017AD000019

PATIENT

DRUGS (5)
  1. UROMITEXAN [Suspect]
     Active Substance: MESNA
     Dosage: ON DAY -3 AND -2
     Route: 042
  2. BUSULFAN. [Suspect]
     Active Substance: BUSULFAN
     Indication: STEM CELL TRANSPLANT
     Dosage: 10 DOSAGES .8 MG/KG EVERY 6 HOUR(S)
     Route: 042
  3. RIVOTRIL [Suspect]
     Active Substance: CLONAZEPAM
     Dosage: 2 MG DAILY; FROM DAY -6 TO DAY -4
     Route: 042
  4. THIOTEPA. [Suspect]
     Active Substance: THIOTEPA
     Indication: STEM CELL TRANSPLANT
     Dosage: 250 MG/M2 DAILY; FROM DAY -7 TO -9
     Route: 042
  5. CYCLOPHOSPHAMIDE. [Suspect]
     Active Substance: CYCLOPHOSPHAMIDE
     Indication: STEM CELL TRANSPLANT
     Dosage: 60 MG/KG DAILY
     Route: 042

REACTIONS (4)
  - Infection [Fatal]
  - Alopecia [Unknown]
  - Cytopenia [Unknown]
  - Febrile neutropenia [Unknown]
